FAERS Safety Report 4392311-3 (Version None)
Quarter: 2004Q3

REPORT INFORMATION
  Report Type: 
  Country: None (occurrence: None)
  Receive Date: 20040702
  Receipt Date: 20040303
  Transmission Date: 20050211
  Serious: Yes (Other)
  Sender: FDA-Public Use
  Company Number: 2004UW04100

PATIENT

DRUGS (3)
  1. CRESTOR [Suspect]
  2. AVELOX [Suspect]
  3. BENADRYL [Concomitant]

REACTIONS (2)
  - HYPERHIDROSIS [None]
  - RASH [None]
